FAERS Safety Report 14749352 (Version 1)
Quarter: 2018Q2

REPORT INFORMATION
  Report Type: Spontaneous
  Country: US (occurrence: US)
  Receive Date: 20180411
  Receipt Date: 20180411
  Transmission Date: 20180711
  Serious: No
  Sender: FDA-Public Use
  Company Number: US-AMGEN-USASP2018033486

PATIENT
  Age: 92 Year
  Sex: Female

DRUGS (1)
  1. PROLIA [Suspect]
     Active Substance: DENOSUMAB
     Indication: OSTEOPOROSIS
     Dosage: UNK
     Route: 065

REACTIONS (6)
  - Gastrointestinal pain [Unknown]
  - Diarrhoea [Unknown]
  - Decreased appetite [Unknown]
  - Papule [Unknown]
  - Pain of skin [Unknown]
  - Weight decreased [Unknown]

NARRATIVE: CASE EVENT DATE: 201801
